FAERS Safety Report 8404215-7 (Version None)
Quarter: 2012Q2

REPORT INFORMATION
  Report Type: 
  Country: None (occurrence: None)
  Receive Date: 20120601
  Receipt Date: 20120523
  Transmission Date: 20120825
  Serious: Yes (Hospitalization)
  Sender: FDA-Public Use
  Company Number: US-JNJFOC-20120515249

PATIENT
  Sex: Female
  Weight: 78.1 kg

DRUGS (11)
  1. INFLIXIMAB, RECOMBINANT [Suspect]
     Indication: CROHN'S DISEASE
     Route: 042
     Dates: start: 20091021
  2. MERCAPTOPURINE [Concomitant]
  3. LANSOPRAZOLE [Concomitant]
  4. METHOTREXATE [Concomitant]
  5. ZOLOFT [Concomitant]
  6. CALCIUM CARBONATE [Concomitant]
  7. DIPHENHYDRAMINE HYDROCHLORIDE [Concomitant]
  8. SUCRALFATE [Concomitant]
  9. CHOLECALCIFEROL [Concomitant]
  10. BUDESONIDE [Concomitant]
  11. AZITHROMYCIN [Concomitant]

REACTIONS (1)
  - CROHN'S DISEASE [None]
